FAERS Safety Report 17097905 (Version 3)
Quarter: 2020Q2

REPORT INFORMATION
  Report Type: Spontaneous
  Country: US (occurrence: US)
  Receive Date: 20191202
  Receipt Date: 20200526
  Transmission Date: 20200713
  Serious: Yes (Life-Threatening, Hospitalization, Other)
  Sender: FDA-Public Use
  Company Number: US-UCBSA-2019046916

PATIENT
  Sex: Female
  Weight: 65 kg

DRUGS (2)
  1. CIMZIA [Suspect]
     Active Substance: CERTOLIZUMAB PEGOL
     Indication: CROHN^S DISEASE
     Dosage: 400 MILLIGRAM, MONTHLY (QM)
     Route: 058
     Dates: start: 201605
  2. MIRENA [Concomitant]
     Active Substance: LEVONORGESTREL
     Indication: CONTRACEPTION
     Dosage: UNK
     Dates: start: 201706

REACTIONS (7)
  - Anal abscess [Recovering/Resolving]
  - Oropharyngeal pain [Recovered/Resolved]
  - Drug ineffective [Unknown]
  - Intestinal obstruction [Recovering/Resolving]
  - Injection site haemorrhage [Not Recovered/Not Resolved]
  - Skin disorder [Recovering/Resolving]
  - Injection site discomfort [Not Recovered/Not Resolved]
